FAERS Safety Report 10543819 (Version 1)
Quarter: 2014Q4

REPORT INFORMATION
  Report Type: Spontaneous
  Country: DE (occurrence: DE)
  Receive Date: 20141027
  Receipt Date: 20141027
  Transmission Date: 20150529
  Serious: Yes (Hospitalization)
  Sender: FDA-Public Use
  Company Number: DE-MYLANLABS-2014M1008327

PATIENT

DRUGS (3)
  1. SULFASALAZINE. [Concomitant]
     Active Substance: SULFASALAZINE
     Indication: CROHN^S DISEASE
     Route: 065
  2. AZATHIOPRINE. [Suspect]
     Active Substance: AZATHIOPRINE
     Dosage: INCREASED OVER LAST 4 YEARS TO 150MG A DAY
     Route: 065
  3. AZATHIOPRINE. [Suspect]
     Active Substance: AZATHIOPRINE
     Indication: CROHN^S DISEASE
     Dosage: 50MG EVERY DAY FOR 14 YEARS
     Route: 065

REACTIONS (1)
  - Signet-ring cell carcinoma [Recovering/Resolving]
